FAERS Safety Report 9092394 (Version 1)
Quarter: 2013Q1

REPORT INFORMATION
  Report Type: Report from Study
  Country: US (occurrence: US)
  Receive Date: 20130131
  Receipt Date: 20130131
  Transmission Date: 20140127
  Serious: No
  Sender: FDA-Public Use
  Company Number: US-ABBOTT-12P-163-0992911-00

PATIENT
  Age: 81 Year
  Sex: Male

DRUGS (22)
  1. HUMIRA [Suspect]
     Indication: CROHN^S DISEASE
     Dosage: LOADING DOSE
     Dates: start: 20120926, end: 20120926
  2. HUMIRA [Suspect]
  3. INVITE MULTIVITAMIN AND MINERAL SUPPLEMENT [Concomitant]
     Indication: EYE DISORDER
     Dosage: DAILY
  4. ATENOLOL [Concomitant]
     Indication: BLOOD PRESSURE
  5. AMLODIPINE BESYLATE [Concomitant]
     Indication: BLOOD PRESSURE
  6. FLUNISOLIDE [Concomitant]
     Indication: HYPERSENSITIVITY
     Dosage: 1 SPRAY IN EACH NOSTRIL TWICE DAILY AS NEEDED
     Route: 045
  7. GABAPENTIN [Concomitant]
     Indication: NERVE INJURY
     Route: 048
  8. MESALAMINE [Concomitant]
     Indication: GASTROINTESTINAL DISORDER
  9. MELOXICAM [Concomitant]
     Indication: GASTROINTESTINAL PAIN
  10. AZATHIOPRINE [Concomitant]
     Indication: PRODUCT USED FOR UNKNOWN INDICATION
     Dosage: DAILY
  11. ERGOCALCIFEROL [Concomitant]
     Indication: VITAMIN SUPPLEMENTATION
  12. CYCLOBENZAPRINE HCL [Concomitant]
     Indication: MUSCLE SPASMS
     Dosage: 1 TABLET EVERY 8 HOURS AS NEEDED
  13. CYCLOBENZAPRINE HCL [Concomitant]
     Indication: MUSCLE SPASMS
  14. TRAMADOL [Concomitant]
     Indication: PAIN
     Dosage: 2 TABLETS 3 TIMES A DAY AS NEEDED
  15. OMEPRAZOLE [Concomitant]
     Indication: GASTROOESOPHAGEAL REFLUX DISEASE
  16. CALCIUM [Concomitant]
     Indication: MINERAL SUPPLEMENTATION
  17. DIPHENOXYLATE [Concomitant]
     Indication: DIARRHOEA
     Dosage: 1 TABLET TWICE DAILY AS NEEDED
  18. ALBUT/IPRATROP NEBULIZER [Concomitant]
     Indication: RESPIRATORY TRACT CONGESTION
  19. ALBUT/IPRATROP NEBULIZER [Concomitant]
     Indication: DYSPNOEA
  20. MEMANTINE HCL [Concomitant]
     Indication: MEMORY IMPAIRMENT
  21. OXYBUTYNIN [Concomitant]
     Indication: PRODUCT USED FOR UNKNOWN INDICATION
  22. RECLAST [Concomitant]
     Indication: BONE DISORDER
     Route: 042

REACTIONS (1)
  - Abdominal pain upper [Recovered/Resolved]
